FAERS Safety Report 17117079 (Version 2)
Quarter: 2019Q4

REPORT INFORMATION
  Report Type: Spontaneous
  Country: IT (occurrence: IT)
  Receive Date: 20191205
  Receipt Date: 20191210
  Transmission Date: 20200122
  Serious: Yes (Other)
  Sender: FDA-Public Use
  Company Number: IT-ASTRAZENECA-2019SF72519

PATIENT
  Age: 82 Year
  Sex: Male

DRUGS (6)
  1. TAGRISSO [Suspect]
     Active Substance: OSIMERTINIB
     Indication: NON-SMALL CELL LUNG CANCER STAGE IIIB
     Route: 048
     Dates: start: 20190704, end: 20190731
  2. SOLDESAM [Concomitant]
     Active Substance: DEXAMETHASONE
  3. PARACODINA [Concomitant]
  4. ESOMEPRAZOLE. [Concomitant]
     Active Substance: ESOMEPRAZOLE MAGNESIUM
  5. ORAMORPH [Concomitant]
     Active Substance: MORPHINE SULFATE
  6. BROMAZEPAM [Concomitant]
     Active Substance: BROMAZEPAM

REACTIONS (4)
  - Malignant neoplasm progression [Unknown]
  - Asthenia [Unknown]
  - Balance disorder [Unknown]
  - General physical health deterioration [Unknown]
